FAERS Safety Report 12631583 (Version 2)
Quarter: 2016Q3

REPORT INFORMATION
  Report Type: Spontaneous
  Country: US (occurrence: US)
  Receive Date: 20160808
  Receipt Date: 20160808
  Transmission Date: 20161109
  Serious: No
  Sender: FDA-Public Use
  Company Number: US-BEH-2015054768

PATIENT
  Sex: Female
  Weight: 51 kg

DRUGS (19)
  1. HIZENTRA [Suspect]
     Active Substance: HUMAN IMMUNOGLOBULIN G
     Indication: IMMUNODEFICIENCY COMMON VARIABLE
     Dosage: 10 GM 50 ML VIAL
     Route: 058
  2. VITAMIN B [Concomitant]
     Active Substance: VITAMIN B
  3. KRILL OIL [Concomitant]
     Active Substance: DIETARY SUPPLEMENT
  4. EPIPEN [Concomitant]
     Active Substance: EPINEPHRINE
     Indication: ANAPHYLACTIC REACTION
  5. ACETAMINOPHEN. [Concomitant]
     Active Substance: ACETAMINOPHEN
  6. MULTIVITAMINS [Concomitant]
     Active Substance: VITAMINS
  7. CALTRATE [Concomitant]
     Active Substance: CALCIUM CARBONATE
  8. CLONAZEPAM. [Concomitant]
     Active Substance: CLONAZEPAM
  9. ADVAIR HFA [Concomitant]
     Active Substance: FLUTICASONE PROPIONATE\SALMETEROL XINAFOATE
  10. VITAMIN D [Concomitant]
     Active Substance: CHOLECALCIFEROL
  11. PLAVIX [Concomitant]
     Active Substance: CLOPIDOGREL BISULFATE
  12. DIPHENHYDRAMINE. [Concomitant]
     Active Substance: DIPHENHYDRAMINE
  13. LIDOCAINE. [Concomitant]
     Active Substance: LIDOCAINE
  14. SYNTHROID [Concomitant]
     Active Substance: LEVOTHYROXINE SODIUM
  15. MUCINEX [Concomitant]
     Active Substance: GUAIFENESIN
  16. IPRATROPIUM [Concomitant]
     Active Substance: IPRATROPIUM
  17. ALBUTEROL. [Concomitant]
     Active Substance: ALBUTEROL
  18. ASPIRIN. [Concomitant]
     Active Substance: ASPIRIN
  19. SPIRIVA [Concomitant]
     Active Substance: TIOTROPIUM BROMIDE MONOHYDRATE

REACTIONS (2)
  - Pyrexia [Unknown]
  - Chest pain [Unknown]
